FAERS Safety Report 18684872 (Version 16)
Quarter: 2023Q1

REPORT INFORMATION
  Report Type: Report from Study
  Country: CA (occurrence: CA)
  Receive Date: 20201230
  Receipt Date: 20230306
  Transmission Date: 20230417
  Serious: Yes (Other)
  Sender: FDA-Public Use
  Company Number: NVSC2020CA340683

PATIENT
  Age: 67 Year
  Sex: Male

DRUGS (4)
  1. SANDOSTATIN LAR DEPOT [Suspect]
     Active Substance: OCTREOTIDE ACETATE
     Indication: Neuroendocrine tumour
     Dosage: 30 MG, Q4W
     Route: 030
     Dates: start: 20201218
  2. SANDOSTATIN LAR DEPOT [Suspect]
     Active Substance: OCTREOTIDE ACETATE
     Dosage: 30 MG
     Route: 030
     Dates: start: 20230224
  3. SANDOSTATIN LAR DEPOT [Suspect]
     Active Substance: OCTREOTIDE ACETATE
  4. SANDOSTATIN [Suspect]
     Active Substance: OCTREOTIDE ACETATE
     Indication: Neuroendocrine tumour
     Dosage: 1 UG
     Route: 058
     Dates: start: 20201210, end: 20201210

REACTIONS (16)
  - Haemorrhage [Unknown]
  - Hypertension [Unknown]
  - Retinal detachment [Unknown]
  - Neuroendocrine tumour [Unknown]
  - Malignant neoplasm progression [Unknown]
  - Stress [Unknown]
  - Pollakiuria [Unknown]
  - Flushing [Unknown]
  - Rhinorrhoea [Unknown]
  - Cough [Unknown]
  - Road traffic accident [Unknown]
  - Diarrhoea [Unknown]
  - Injection site pain [Unknown]
  - Injection site pain [Unknown]
  - Injection site haemorrhage [Recovered/Resolved]
  - Injection site haemorrhage [Unknown]

NARRATIVE: CASE EVENT DATE: 20201218
